FAERS Safety Report 6526397-4 (Version None)
Quarter: 2010Q2

REPORT INFORMATION
  Report Type: 
  Country: None (occurrence: None)
  Receive Date: 20100105
  Receipt Date: 20091229
  Transmission Date: 20101027
  Serious: Yes (Other)
  Sender: FDA-Public Use
  Company Number: US-RB-000073-10

PATIENT
  Age: 16 Year
  Sex: Male

DRUGS (1)
  1. DELSYM [Suspect]
     Dosage: DRANK 3 BOTTLES IN ONE DAY
     Dates: start: 20091201

REACTIONS (2)
  - OVERDOSE [None]
  - UNRESPONSIVE TO STIMULI [None]
